FAERS Safety Report 14710069 (Version 1)
Quarter: 2018Q2

REPORT INFORMATION
  Report Type: Spontaneous
  Country: US (occurrence: US)
  Receive Date: 20180403
  Receipt Date: 20180403
  Transmission Date: 20180711
  Serious: No
  Sender: FDA-Public Use
  Company Number: US-TAKEDA-2018TUS007578

PATIENT
  Sex: Female

DRUGS (1)
  1. TRINTELLIX [Suspect]
     Active Substance: VORTIOXETINE HYDROBROMIDE
     Indication: DEPRESSION
     Dosage: 5 MG, UNK
     Route: 065

REACTIONS (7)
  - Somnolence [Unknown]
  - Palpitations [Unknown]
  - Insomnia [Unknown]
  - Drug dose omission [Unknown]
  - Headache [Unknown]
  - Anxiety [Unknown]
  - Stress [Unknown]
